FAERS Safety Report 9689486 (Version 2)
Quarter: 2013Q4

REPORT INFORMATION
  Report Type: Report from Study
  Country: CA (occurrence: CA)
  Receive Date: 20131114
  Receipt Date: 20131125
  Transmission Date: 20140711
  Serious: Yes (Other)
  Sender: FDA-Public Use
  Company Number: CA-ABBVIE-13P-028-1168499-00

PATIENT
  Age: 49 Year
  Sex: Female
  Weight: 58.11 kg

DRUGS (2)
  1. HUMIRA [Suspect]
     Indication: CROHN^S DISEASE
     Route: 058
     Dates: start: 20120418, end: 20131002
  2. HUMIRA [Suspect]
     Indication: INTESTINAL FISTULA

REACTIONS (6)
  - Large intestinal stenosis [Unknown]
  - Fibrosing colonopathy [Unknown]
  - Hypophagia [Recovered/Resolved]
  - Abdominal adhesions [Recovering/Resolving]
  - Intestinal obstruction [Unknown]
  - Abdominal pain [Unknown]
